FAERS Safety Report 22521129 (Version 2)
Quarter: 2024Q2

REPORT INFORMATION
  Report Type: Spontaneous
  Country: US (occurrence: US)
  Receive Date: 20230605
  Receipt Date: 20240528
  Transmission Date: 20240716
  Serious: Yes (Death, Other)
  Sender: FDA-Public Use
  Company Number: US-BIOCODEX2-2022001448

PATIENT
  Age: 2 Year
  Sex: Male
  Weight: 15.6 kg

DRUGS (9)
  1. DIACOMIT [Suspect]
     Active Substance: STIRIPENTOL
     Indication: Severe myoclonic epilepsy of infancy
     Dosage: 200MG BY MOUTH TWICE DAILY
     Route: 048
  2. DIACOMIT [Suspect]
     Active Substance: STIRIPENTOL
     Indication: Severe myoclonic epilepsy of infancy
     Dosage: 300MG BY MOUTH TWICE DAILY
     Route: 048
     Dates: start: 20221007
  3. DIACOMIT [Suspect]
     Active Substance: STIRIPENTOL
     Indication: Severe myoclonic epilepsy of infancy
     Dosage: 300MG BY MOUTH TWICE DAILY
     Route: 048
     Dates: start: 20221007
  4. DIACOMIT [Suspect]
     Active Substance: STIRIPENTOL
     Indication: Severe myoclonic epilepsy of infancy
     Dosage: 375 MG BY MOUTH TWICE DAILY
     Route: 048
     Dates: start: 20221007
  5. DIACOMIT [Suspect]
     Active Substance: STIRIPENTOL
     Indication: Severe myoclonic epilepsy of infancy
     Dosage: 375 MG BY MOUTH TWICE DAILY
     Route: 048
     Dates: start: 20221007
  6. CLOBAZAM [Concomitant]
     Active Substance: CLOBAZAM
     Indication: Severe myoclonic epilepsy of infancy
     Route: 065
  7. KEPPRA [Concomitant]
     Active Substance: LEVETIRACETAM
     Indication: Product used for unknown indication
     Route: 065
  8. DIASTAT [Concomitant]
     Active Substance: DIAZEPAM
     Indication: Product used for unknown indication
     Route: 065
  9. DEPAKOTE [Concomitant]
     Active Substance: DIVALPROEX SODIUM
     Indication: Product used for unknown indication
     Route: 065

REACTIONS (3)
  - Product preparation issue [Unknown]
  - Change in seizure presentation [Unknown]
  - Death [Fatal]

NARRATIVE: CASE EVENT DATE: 20221007
